FAERS Safety Report 25300521 (Version 2)
Quarter: 2025Q3

REPORT INFORMATION
  Report Type: Spontaneous
  Country: US (occurrence: US)
  Receive Date: 20250512
  Receipt Date: 20250710
  Transmission Date: 20251020
  Serious: No
  Sender: ASCENT PHARMACEUTICALS INC
  Company Number: US-ASCENT-2025ASSPO00055

PATIENT
  Sex: Male

DRUGS (1)
  1. ACETAMINOPHEN\OXYCODONE HYDROCHLORIDE [Suspect]
     Active Substance: ACETAMINOPHEN\OXYCODONE HYDROCHLORIDE
     Indication: Pain management
     Route: 048
     Dates: start: 20250328

REACTIONS (5)
  - Abdominal pain upper [Unknown]
  - Headache [Unknown]
  - Nausea [Unknown]
  - Therapeutic response decreased [Unknown]
  - Product substitution issue [Unknown]

NARRATIVE: CASE EVENT DATE: 20250328
